FAERS Safety Report 12180107 (Version 1)
Quarter: 2016Q1

REPORT INFORMATION
  Report Type: Spontaneous
  Country: US (occurrence: None)
  Receive Date: 20160314
  Receipt Date: 20160314
  Transmission Date: 20160526
  Serious: No
  Sender: FDA-Public Use
  Company Number: None

PATIENT
  Age: 70 Year
  Sex: Male
  Weight: 88.91 kg

DRUGS (4)
  1. INSULIN [Suspect]
     Active Substance: INSULIN NOS
  2. ASPIRIN. [Concomitant]
     Active Substance: ASPIRIN
  3. HUMALOG [Concomitant]
     Active Substance: INSULIN LISPRO
  4. LEVERNIR [Concomitant]

REACTIONS (2)
  - Incorrect dose administered [None]
  - Injection site extravasation [None]

NARRATIVE: CASE EVENT DATE: 20160101
